FAERS Safety Report 5086738-4 (Version None)
Quarter: 2006Q3

REPORT INFORMATION
  Report Type: 
  Country: None (occurrence: None)
  Receive Date: 20060823
  Receipt Date: 20060623
  Transmission Date: 20061208
  Serious: Yes (Hospitalization)
  Sender: FDA-Public Use
  Company Number: GB-ROCHE-453387

PATIENT
  Age: 43 Year
  Sex: Female
  Weight: 83 kg

DRUGS (3)
  1. NAPROSYN [Suspect]
     Indication: ANKYLOSING SPONDYLITIS
     Route: 048
     Dates: start: 19980615, end: 20060620
  2. PENICILLIN V [Concomitant]
     Route: 048
     Dates: start: 20060506, end: 20060511
  3. CETIRIZINE [Concomitant]
     Route: 048
     Dates: start: 20060508, end: 20060511

REACTIONS (1)
  - EPISTAXIS [None]
